FAERS Safety Report 4787843-X (Version None)
Quarter: 2005Q4

REPORT INFORMATION
  Report Type: 
  Country: None (occurrence: None)
  Receive Date: 20051004
  Receipt Date: 20050609
  Transmission Date: 20060501
  Serious: Yes (Hospitalization)
  Sender: FDA-Public Use
  Company Number: US-MERCK-0506USA01880

PATIENT
  Age: 53 Year
  Sex: Male
  Weight: 114 kg

DRUGS (2)
  1. VIOXX [Suspect]
     Indication: BACK PAIN
     Route: 048
     Dates: start: 20010701, end: 20040928
  2. LOTREL [Concomitant]
     Indication: HYPERTENSION
     Route: 065
     Dates: start: 20030101

REACTIONS (7)
  - DEEP VEIN THROMBOSIS [None]
  - ERECTILE DYSFUNCTION [None]
  - HAEMATOCHEZIA [None]
  - HAEMATURIA [None]
  - NEPHROLITHIASIS [None]
  - SEBORRHOEIC DERMATITIS [None]
  - THROMBOSIS [None]
